FAERS Safety Report 4273726-0 (Version None)
Quarter: 2004Q1

REPORT INFORMATION
  Report Type: 
  Country: None (occurrence: None)
  Receive Date: 20040116
  Receipt Date: 20040116
  Transmission Date: 20041129
  Serious: No
  Sender: FDA-Public Use
  Company Number: None

PATIENT
  Sex: Female
  Weight: 83.9154 kg

DRUGS (2)
  1. ZESTORETIC [Suspect]
     Indication: HYPERTENSION
     Dosage: 20/25
  2. LISINOPRIL [Concomitant]

REACTIONS (1)
  - HYPERSENSITIVITY [None]
